FAERS Safety Report 20019304 (Version 2)
Quarter: 2022Q1

REPORT INFORMATION
  Report Type: Spontaneous
  Country: JP (occurrence: JP)
  Receive Date: 20211101
  Receipt Date: 20220204
  Transmission Date: 20220423
  Serious: Yes (Hospitalization, Other)
  Sender: FDA-Public Use
  Company Number: JP-PFIZER INC-202101395718

PATIENT
  Age: 6 Decade
  Sex: Male

DRUGS (4)
  1. LINEZOLID [Suspect]
     Active Substance: LINEZOLID
     Dosage: UNK
  2. PIPERACILLIN SODIUM\TAZOBACTAM SODIUM [Suspect]
     Active Substance: PIPERACILLIN SODIUM\TAZOBACTAM SODIUM
     Dosage: UNK
  3. AFATINIB [Concomitant]
     Active Substance: AFATINIB
     Dosage: 40 MG, DAILY
  4. AFATINIB [Concomitant]
     Active Substance: AFATINIB
     Dosage: 20 MG, DAILY

REACTIONS (1)
  - Acute kidney injury [Unknown]
